FAERS Safety Report 25873208 (Version 2)
Quarter: 2025Q4

REPORT INFORMATION
  Report Type: Spontaneous
  Country: US (occurrence: US)
  Receive Date: 20251002
  Receipt Date: 20251003
  Transmission Date: 20260118
  Serious: No
  Sender: BAYER HEALTHCARE PHARMACEUTICALS INC.
  Company Number: US-BAYER-2025A129029

PATIENT
  Sex: Female

DRUGS (2)
  1. ESTRADIOL [Suspect]
     Active Substance: ESTRADIOL
     Dosage: 1 DF, OW
     Route: 062
     Dates: start: 2016
  2. PROGESTERONE [Concomitant]
     Active Substance: PROGESTERONE

REACTIONS (2)
  - Device adhesion issue [None]
  - Wrong technique in product usage process [None]

NARRATIVE: CASE EVENT DATE: 20250923
